FAERS Safety Report 19902826 (Version 5)
Quarter: 2022Q2

REPORT INFORMATION
  Report Type: Report from Study
  Country: JP (occurrence: JP)
  Receive Date: 20211001
  Receipt Date: 20220404
  Transmission Date: 20220721
  Serious: Yes (Death, Hospitalization, Other)
  Sender: FDA-Public Use
  Company Number: JP-SA-2020SA253919

PATIENT
  Age: 85 Year
  Sex: Male
  Weight: 58.7 kg

DRUGS (9)
  1. ISATUXIMAB [Suspect]
     Active Substance: ISATUXIMAB
     Indication: Plasma cell myeloma
     Dosage: 10 MG/KG, 1X
     Route: 041
     Dates: start: 20200916, end: 20200916
  2. POMALIDOMIDE [Suspect]
     Active Substance: POMALIDOMIDE
     Indication: Plasma cell myeloma
     Dosage: DAILY DOSE: 2 (UNIT, UNSPECIFIED)
     Route: 065
     Dates: start: 20200916, end: 20200928
  3. DEXAMETHASONE [Concomitant]
     Active Substance: DEXAMETHASONE
     Indication: Plasma cell myeloma
     Dosage: 20 MG, QW
     Route: 065
     Dates: start: 20200916, end: 20200923
  4. FAMOTIDINE [Concomitant]
     Active Substance: FAMOTIDINE
     Indication: Chemotherapy side effect prophylaxis
     Dosage: DAILY DOSE: 20 MG
     Route: 065
     Dates: start: 20200916, end: 20200916
  5. CHLORPHENIRAMINE MALEATE [Concomitant]
     Active Substance: CHLORPHENIRAMINE MALEATE
     Indication: Chemotherapy side effect prophylaxis
     Dosage: DAILY DOSE: 10 MG
     Route: 065
     Dates: start: 20200916, end: 20200916
  6. CALONAL [Concomitant]
     Active Substance: ACETAMINOPHEN
     Indication: Chemotherapy side effect prophylaxis
     Dosage: DAILY DOSE: 1000 MG
     Route: 065
     Dates: start: 20200916, end: 20200916
  7. SULFAMETHOXAZOLE\TRIMETHOPRIM [Concomitant]
     Active Substance: SULFAMETHOXAZOLE\TRIMETHOPRIM
     Indication: Infection prophylaxis
     Dosage: DAILY DOSE: 1 TABLET
     Route: 048
     Dates: start: 20190705, end: 20201012
  8. VALACYCLOVIR HYDROCHLORIDE [Concomitant]
     Active Substance: VALACYCLOVIR HYDROCHLORIDE
     Indication: Infection prophylaxis
     Dosage: DAILY DOSE: 500 MG
     Route: 065
     Dates: start: 20190705, end: 20201012
  9. METHANIAZIDE SODIUM [Concomitant]
     Active Substance: METHANIAZIDE SODIUM
     Indication: Infection prophylaxis
     Dosage: DAILY DOSE: 300 MG
     Route: 065
     Dates: start: 20181218, end: 20201012

REACTIONS (6)
  - Hypercalcaemia [Fatal]
  - Acute kidney injury [Fatal]
  - Pleural effusion [Not Recovered/Not Resolved]
  - Neutrophil count decreased [Recovered/Resolved]
  - Febrile neutropenia [Recovered/Resolved]
  - Infection [Recovered/Resolved]

NARRATIVE: CASE EVENT DATE: 20200921
